FAERS Safety Report 7571040-9 (Version None)
Quarter: 2011Q2

REPORT INFORMATION
  Report Type: 
  Country: None (occurrence: None)
  Receive Date: 20110622
  Receipt Date: 20110622
  Transmission Date: 20111010
  Serious: Yes (Other)
  Sender: FDA-Public Use
  Company Number: None

PATIENT
  Sex: Female
  Weight: 97.0698 kg

DRUGS (1)
  1. BUTRANS [Suspect]
     Indication: FIBROMYALGIA
     Route: 062

REACTIONS (4)
  - PARAESTHESIA [None]
  - PAIN IN EXTREMITY [None]
  - DIARRHOEA [None]
  - FEAR [None]
